FAERS Safety Report 5233998-2 (Version None)
Quarter: 2007Q1

REPORT INFORMATION
  Report Type: 
  Country: None (occurrence: None)
  Receive Date: 20070208
  Receipt Date: 20070129
  Transmission Date: 20070707
  Serious: Yes (Hospitalization)
  Sender: FDA-Public Use
  Company Number: FR-ABBOTT-07P-056-0357394-00

PATIENT
  Sex: Male
  Weight: 70 kg

DRUGS (3)
  1. NORVIR [Suspect]
     Indication: HIV INFECTION
     Route: 048
     Dates: start: 20060703, end: 20060705
  2. ATAZANAVIR SULFATE [Suspect]
     Indication: HIV INFECTION
     Route: 048
     Dates: start: 20060703, end: 20060705
  3. TENOFOVIR/EMTRICITABINE [Suspect]
     Indication: HIV INFECTION
     Route: 048
     Dates: start: 20060703, end: 20060705

REACTIONS (5)
  - DYSTHYMIC DISORDER [None]
  - HEPATIC ENZYME INCREASED [None]
  - MANIA [None]
  - MENTAL DISORDER [None]
  - PERSECUTORY DELUSION [None]
